FAERS Safety Report 5442890-X (Version None)
Quarter: 2007Q3

REPORT INFORMATION
  Report Type: 
  Country: None (occurrence: None)
  Receive Date: 20070831
  Receipt Date: 20070831
  Transmission Date: 20080115
  Serious: Yes (Hospitalization, Other)
  Sender: FDA-Public Use
  Company Number: None

PATIENT
  Sex: Female
  Weight: 54.4316 kg

DRUGS (1)
  1. VENOFER [Suspect]
     Indication: IRON DEFICIENCY
     Dosage: 300MG X 1 IV
     Route: 042
     Dates: start: 20070809

REACTIONS (4)
  - INFUSION RELATED REACTION [None]
  - OEDEMA [None]
  - SKIN BURNING SENSATION [None]
  - SKIN DISCOLOURATION [None]
